FAERS Safety Report 4875181-6 (Version None)
Quarter: 2006Q1

REPORT INFORMATION
  Report Type: 
  Country: None (occurrence: None)
  Receive Date: 20060109
  Receipt Date: 20051228
  Transmission Date: 20060701
  Serious: Yes (Disabling)
  Sender: FDA-Public Use
  Company Number: PHEH2005US13984

PATIENT
  Age: 35 Year
  Sex: Female

DRUGS (1)
  1. VIVELLE-DOT [Suspect]
     Route: 062

REACTIONS (1)
  - AUTOIMMUNE NEUTROPENIA [None]
